FAERS Safety Report 6283931-X (Version None)
Quarter: 2009Q3

REPORT INFORMATION
  Report Type: 
  Country: None (occurrence: None)
  Receive Date: 20090722
  Receipt Date: 20090722
  Transmission Date: 20100115
  Serious: Yes (Other)
  Sender: FDA-Public Use
  Company Number: None

PATIENT
  Sex: Female
  Weight: 68.0396 kg

DRUGS (1)
  1. SOTALOL HCL [Suspect]
     Indication: VENTRICULAR TACHYCARDIA

REACTIONS (4)
  - FEELING ABNORMAL [None]
  - HYPERSENSITIVITY [None]
  - NONSPECIFIC REACTION [None]
  - PRODUCT SUBSTITUTION ISSUE [None]
